FAERS Safety Report 16403150 (Version 1)
Quarter: 2019Q2

REPORT INFORMATION
  Report Type: Spontaneous
  Country: JP (occurrence: JP)
  Receive Date: 20190607
  Receipt Date: 20190607
  Transmission Date: 20190711
  Serious: Yes (Other)
  Sender: FDA-Public Use
  Company Number: PHJP2019JP006247

PATIENT
  Age: 70 Year

DRUGS (2)
  1. AFINITOR [Suspect]
     Active Substance: EVEROLIMUS
     Indication: RENAL CANCER
     Dosage: 10 MG, UNK
     Route: 048
     Dates: start: 201904
  2. AFINITOR [Suspect]
     Active Substance: EVEROLIMUS
     Dosage: 5 MG, UNK
     Route: 048
     Dates: start: 201905

REACTIONS (7)
  - Interstitial lung disease [Unknown]
  - Cytopenia [Recovering/Resolving]
  - C-reactive protein increased [Unknown]
  - Cough [Unknown]
  - Myalgia [Unknown]
  - Oropharyngeal discomfort [Unknown]
  - Imaging procedure abnormal [Unknown]
